FAERS Safety Report 14204067 (Version 2)
Quarter: 2017Q4

REPORT INFORMATION
  Report Type: Spontaneous
  Country: TR (occurrence: TR)
  Receive Date: 20171120
  Receipt Date: 20171221
  Transmission Date: 20180321
  Serious: Yes (Other)
  Sender: FDA-Public Use
  Company Number: PHHY2017TR168436

PATIENT
  Age: 38 Year
  Weight: 61 kg

DRUGS (1)
  1. FINGYA [Suspect]
     Active Substance: FINGOLIMOD
     Indication: RELAPSING-REMITTING MULTIPLE SCLEROSIS
     Dosage: 0.5 MG, QD
     Route: 048
     Dates: start: 20070123, end: 20171023

REACTIONS (6)
  - Uterine cervical erosion [Unknown]
  - Cervical dysplasia [Unknown]
  - Coital bleeding [Unknown]
  - Cervicitis [Unknown]
  - Cervix carcinoma [Unknown]
  - Cervical cyst [Unknown]

NARRATIVE: CASE EVENT DATE: 20170825
